FAERS Safety Report 25779209 (Version 1)
Quarter: 2025Q3

REPORT INFORMATION
  Report Type: Spontaneous
  Country: US (occurrence: None)
  Receive Date: 20250909
  Receipt Date: 20250909
  Transmission Date: 20251021
  Serious: Yes (Other)
  Sender: FDA-CTU
  Company Number: None

PATIENT
  Age: 71 Year
  Sex: Female
  Weight: 105.3 kg

DRUGS (12)
  1. LINZESS [Suspect]
     Active Substance: LINACLOTIDE
     Indication: Functional gastrointestinal disorder
     Dosage: 1 CAPSULE(S)  DAILY ORAL
     Route: 048
     Dates: start: 20250508, end: 20250511
  2. LINZESS [Suspect]
     Active Substance: LINACLOTIDE
     Indication: Constipation
  3. Insulin Humalog 75/25 - 75 units twice a day [Concomitant]
  4. Losartan 100 mg tablet - once daily [Concomitant]
  5. Atorvastatin 80 mg tablet - once daily [Concomitant]
  6. Montelukast 10 mg tablet - once daily [Concomitant]
  7. VITAMINS [Concomitant]
     Active Substance: VITAMINS
  8. TYLENOL [Concomitant]
     Active Substance: ACETAMINOPHEN
  9. VITAMIN D [Concomitant]
     Active Substance: VITAMIN D NOS
  10. CALCIUM [Concomitant]
     Active Substance: CALCIUM
  11. MAGNESIUM [Concomitant]
     Active Substance: MAGNESIUM
  12. ZYRTEC [Concomitant]
     Active Substance: CETIRIZINE HYDROCHLORIDE

REACTIONS (14)
  - Dizziness [None]
  - Nausea [None]
  - Vomiting [None]
  - Asthenia [None]
  - Dehydration [None]
  - Chills [None]
  - Chills [None]
  - Musculoskeletal disorder [None]
  - Hypophagia [None]
  - Hypoaesthesia [None]
  - Pruritus [None]
  - Brain fog [None]
  - Blood glucose increased [None]
  - Impaired work ability [None]

NARRATIVE: CASE EVENT DATE: 20250508
